FAERS Safety Report 6170393-6 (Version None)
Quarter: 2009Q2

REPORT INFORMATION
  Report Type: 
  Country: None (occurrence: None)
  Receive Date: 20090428
  Receipt Date: 20090416
  Transmission Date: 20091009
  Serious: Yes (Other)
  Sender: FDA-Public Use
  Company Number: US-PFIZER INC-2009162680

PATIENT
  Sex: Female
  Weight: 101 kg

DRUGS (3)
  1. DEPO-PROVERA [Suspect]
     Indication: CONTRACEPTION
     Dosage: 150 MG, FIRST INJECTION
     Route: 030
     Dates: start: 20081020, end: 20081020
  2. DEPO-PROVERA [Suspect]
     Dosage: 150 MG, SECOND INJECTION
     Route: 030
     Dates: start: 20090115, end: 20090115
  3. DEPO-PROVERA [Suspect]
     Dosage: 150 MG, MOST RECENT INJECTION
     Dates: start: 20090409, end: 20090409

REACTIONS (1)
  - DIABETES MELLITUS INADEQUATE CONTROL [None]
